FAERS Safety Report 8524279-X (Version None)
Quarter: 2012Q3

REPORT INFORMATION
  Report Type: 
  Country: None (occurrence: None)
  Receive Date: 20120720
  Receipt Date: 20120717
  Transmission Date: 20120928
  Serious: Yes (Other)
  Sender: FDA-Public Use
  Company Number: US-ABBOTT-12P-163-0925971-00

PATIENT
  Sex: Male
  Weight: 110.78 kg

DRUGS (6)
  1. FOLIC ACID [Concomitant]
     Indication: VITAMIN SUPPLEMENTATION
  2. ANDROGEL [Suspect]
     Indication: PITUITARY TUMOUR BENIGN
     Dosage: 5 GM/D (4 PUMPS PER DAY)
     Route: 061
     Dates: start: 20050101
  3. DIOVAN [Concomitant]
     Indication: HYPERTENSION
  4. TOPROL-XL [Concomitant]
     Indication: HYPERTENSION
  5. DDAVP [Concomitant]
     Indication: HYPOTHALAMO-PITUITARY DISORDER
  6. ASPIRIN [Concomitant]
     Indication: CARDIAC DISORDER
     Route: 048
     Dates: start: 20020101

REACTIONS (3)
  - MELANOCYTIC NAEVUS [None]
  - APPLICATION SITE DRYNESS [None]
  - SKIN CANCER [None]
